FAERS Safety Report 8577499 (Version 5)
Quarter: 2013Q4

REPORT INFORMATION
  Report Type: Report from Study
  Country: DE (occurrence: DE)
  Receive Date: 20120524
  Receipt Date: 20131001
  Transmission Date: 20140711
  Serious: Yes (Hospitalization)
  Sender: FDA-Public Use
  Company Number: DE-UCBSA-057637

PATIENT
  Sex: Male
  Weight: 85 kg

DRUGS (5)
  1. CERTOLIZUMAB PEGOL [Suspect]
     Route: 058
     Dates: start: 201003, end: 201204
  2. MOXONIDINE [Concomitant]
     Indication: HYPERTENSION
     Dates: start: 2008
  3. BISOPROLOL [Concomitant]
     Indication: HYPERTENSION
     Dates: start: 2008
  4. PREDNISOLONE [Concomitant]
     Indication: RHEUMATOID ARTHRITIS
     Dates: start: 2010
  5. MTX [Concomitant]
     Indication: RHEUMATOID ARTHRITIS
     Dosage: 15 MG
     Dates: start: 201002, end: 201204

REACTIONS (1)
  - Anaemia [Recovered/Resolved]
